FAERS Safety Report 24068966 (Version 1)
Quarter: 2024Q3

REPORT INFORMATION
  Report Type: Report from Study
  Country: CN (occurrence: CN)
  Receive Date: 20240710
  Receipt Date: 20240710
  Transmission Date: 20241016
  Serious: No
  Sender: ROCHE
  Company Number: CN-ROCHE-3347396

PATIENT
  Age: 55 Year
  Sex: Female

DRUGS (1)
  1. ALECENSA [Suspect]
     Active Substance: ALECTINIB HYDROCHLORIDE
     Indication: Non-small cell lung cancer metastatic
     Dosage: 224 CAPSULES PER BOX
     Route: 048
     Dates: start: 20230321

REACTIONS (4)
  - Chest pain [Recovering/Resolving]
  - Alopecia [Recovering/Resolving]
  - Chest discomfort [Unknown]
  - Dyspnoea [Unknown]
